FAERS Safety Report 17801018 (Version 1)
Quarter: 2020Q2

REPORT INFORMATION
  Report Type: Spontaneous
  Country: US (occurrence: US)
  Receive Date: 20200519
  Receipt Date: 20200519
  Transmission Date: 20200714
  Serious: No
  Sender: FDA-Public Use
  Company Number: US-JNJFOC-20200423509

PATIENT
  Age: 7 Decade
  Sex: Female
  Weight: 70.37 kg

DRUGS (1)
  1. WOMENS ROGAINE UNSCENTED [Suspect]
     Active Substance: MINOXIDIL
     Indication: PRODUCT USED FOR UNKNOWN INDICATION
     Dosage: HALF A CAPFUL
     Route: 061
     Dates: start: 202002, end: 2020

REACTIONS (2)
  - Application site pruritus [Recovered/Resolved]
  - Dandruff [Recovered/Resolved]

NARRATIVE: CASE EVENT DATE: 2020
